FAERS Safety Report 8539561-X (Version None)
Quarter: 2012Q3

REPORT INFORMATION
  Report Type: 
  Country: None (occurrence: None)
  Receive Date: 20120726
  Receipt Date: 20120718
  Transmission Date: 20120928
  Serious: Yes (Other)
  Sender: FDA-Public Use
  Company Number: US-ELI_LILLY_AND_COMPANY-US201207005831

PATIENT
  Sex: Female

DRUGS (1)
  1. AXIRON [Suspect]
     Dosage: UNK, UNKNOWN
     Route: 065

REACTIONS (5)
  - INJURY [None]
  - BREAST TENDERNESS [None]
  - ACNE [None]
  - VENTRICULAR TACHYCARDIA [None]
  - SUPRAVENTRICULAR EXTRASYSTOLES [None]
